FAERS Safety Report 14889947 (Version 1)
Quarter: 2018Q2

REPORT INFORMATION
  Report Type: Spontaneous
  Country: IS (occurrence: IS)
  Receive Date: 20180514
  Receipt Date: 20180514
  Transmission Date: 20180711
  Serious: Yes (Other)
  Sender: FDA-Public Use
  Company Number: IS-TEVA-2018-IS-892605

PATIENT
  Age: 37 Year
  Sex: Male
  Weight: 130 kg

DRUGS (1)
  1. ESOMEPRAZOLE ACTAVIS 40 MG GASTRO-RESISTANT TABLETS [Suspect]
     Active Substance: ESOMEPRAZOLE
     Dosage: 1 X 1
     Route: 065
     Dates: start: 20170101

REACTIONS (1)
  - Arrhythmia [Not Recovered/Not Resolved]

NARRATIVE: CASE EVENT DATE: 20180101
